FAERS Safety Report 21327831 (Version 1)
Quarter: 2022Q3

REPORT INFORMATION
  Report Type: Report from Study
  Country: IT (occurrence: IT)
  Receive Date: 20220913
  Receipt Date: 20220913
  Transmission Date: 20221027
  Serious: Yes (Death, Hospitalization)
  Sender: FDA-Public Use
  Company Number: IT-MYLANLABS-2022M1093319

PATIENT
  Age: 83 Month
  Sex: Female

DRUGS (6)
  1. METHOTREXATE [Suspect]
     Active Substance: METHOTREXATE
     Indication: Medulloblastoma
     Dosage: 8 GRAM PER SQUARE METRE (8 G/M2 AT WEEK 0 AND 1)
     Route: 065
  2. VINCRISTINE [Suspect]
     Active Substance: VINCRISTINE
     Indication: Medulloblastoma
     Dosage: 1.4 MILLIGRAM/SQ. METER
     Route: 065
  3. ETOPOSIDE [Suspect]
     Active Substance: ETOPOSIDE
     Indication: Medulloblastoma
     Dosage: 2.4 GRAM PER SQUARE METRE (2.4 G/M 2 AT WEEK 4)
     Route: 065
  4. CYCLOPHOSPHAMIDE [Suspect]
     Active Substance: CYCLOPHOSPHAMIDE
     Indication: Medulloblastoma
     Dosage: 4 GRAM PER SQUARE METRE (4 G/M2 AT WEEK 7)
     Route: 065
  5. CARBOPLATIN [Suspect]
     Active Substance: CARBOPLATIN
     Indication: Medulloblastoma
     Dosage: 800 MILLIGRAM/SQ. METER (ON THE WEEK 7)
     Route: 065
  6. THIOTEPA [Suspect]
     Active Substance: THIOTEPA
     Indication: Medulloblastoma
     Dosage: 300 MILLIGRAM/SQ. METER (FOR 3 CONSECUTIVE DAYS)
     Route: 065

REACTIONS (4)
  - Drug ineffective [Fatal]
  - Disease progression [Fatal]
  - Cardiotoxicity [Unknown]
  - Atrial tachycardia [Unknown]
